FAERS Safety Report 6736434-X (Version None)
Quarter: 2010Q2

REPORT INFORMATION
  Report Type: 
  Country: None (occurrence: None)
  Receive Date: 20100521
  Receipt Date: 20100513
  Transmission Date: 20101027
  Serious: Yes (Hospitalization, Other)
  Sender: FDA-Public Use
  Company Number: US-MERCK-0810USA01675

PATIENT
  Age: 65 Year
  Sex: Female
  Weight: 60 kg

DRUGS (4)
  1. FOSAMAX [Suspect]
     Indication: OSTEOPOROSIS
     Route: 048
     Dates: start: 19960501, end: 20010101
  2. FOSAMAX [Suspect]
     Route: 048
     Dates: start: 20000605, end: 20020801
  3. FOSAMAX [Suspect]
     Route: 048
     Dates: start: 20020101, end: 20020904
  4. FOSAMAX PLUS D [Suspect]
     Route: 048
     Dates: start: 20060501, end: 20080101

REACTIONS (10)
  - ARTHRALGIA [None]
  - BLOOD CHOLESTEROL INCREASED [None]
  - BONE DENSITY DECREASED [None]
  - BONE METABOLISM DISORDER [None]
  - FALL [None]
  - FEMUR FRACTURE [None]
  - HIP FRACTURE [None]
  - HYPERTENSION [None]
  - LOW TURNOVER OSTEOPATHY [None]
  - TOOTH DISORDER [None]
